FAERS Safety Report 5968614-5 (Version None)
Quarter: 2008Q4

REPORT INFORMATION
  Report Type: 
  Country: None (occurrence: None)
  Receive Date: 20081121
  Receipt Date: 20081121
  Transmission Date: 20090506
  Serious: Yes (Other)
  Sender: FDA-Public Use
  Company Number: None

PATIENT
  Age: 13 Year
  Sex: Male

DRUGS (1)
  1. RISPERDAL [Suspect]

REACTIONS (5)
  - DYSTONIA [None]
  - LARYNGOSPASM [None]
  - RESPIRATORY ARREST [None]
  - THROAT TIGHTNESS [None]
  - TONGUE DISORDER [None]
